FAERS Safety Report 9384020 (Version 3)
Quarter: 2013Q3

REPORT INFORMATION
  Report Type: Spontaneous
  Country: US (occurrence: US)
  Receive Date: 20130705
  Receipt Date: 20130819
  Transmission Date: 20140515
  Serious: Yes (Death)
  Sender: FDA-Public Use
  Company Number: US-JNJFOC-20130618858

PATIENT
  Age: 90 Year
  Sex: Male

DRUGS (1)
  1. ZYTIGA [Suspect]
     Indication: METASTASES TO BONE
     Dosage: STRENGTH OF 250 MG
     Route: 048
     Dates: start: 20121102, end: 20130417

REACTIONS (1)
  - Death [Fatal]
